FAERS Safety Report 8281512-X (Version None)
Quarter: 2012Q2

REPORT INFORMATION
  Report Type: 
  Country: None (occurrence: None)
  Receive Date: 20120413
  Receipt Date: 20120411
  Transmission Date: 20120825
  Serious: Yes (Hospitalization)
  Sender: FDA-Public Use
  Company Number: GB-PFIZER INC-2012089848

PATIENT
  Age: 77 Year
  Sex: Male
  Weight: 77 kg

DRUGS (7)
  1. CISPLATIN [Suspect]
     Indication: GASTRIC CANCER
     Dosage: 110 MG, UNK
     Route: 042
     Dates: start: 20111018, end: 20111018
  2. EPIRUBICIN HYDROCHLORIDE [Suspect]
     Indication: GASTRIC CANCER
     Dosage: 90 MG, UNK
     Route: 042
     Dates: start: 20111018, end: 20111018
  3. ATENOLOL [Concomitant]
     Indication: PRODUCT USED FOR UNKNOWN INDICATION
     Dosage: 50 MG, UNK
     Route: 048
  4. OMEPRAZOLE [Concomitant]
     Indication: PRODUCT USED FOR UNKNOWN INDICATION
     Dosage: 20 MG, UNK
  5. DOMPERIDONE [Concomitant]
     Indication: PRODUCT USED FOR UNKNOWN INDICATION
  6. CAPECITABINE [Suspect]
     Indication: GASTRIC CANCER
     Dosage: 1000 MG, UNK
     Route: 048
     Dates: start: 20111018, end: 20111108
  7. BEVACIZUMAB [Suspect]
     Indication: GASTRIC CANCER
     Dosage: 570 MG, UNK
     Route: 041
     Dates: start: 20111018, end: 20111018

REACTIONS (1)
  - GASTRITIS [None]
